FAERS Safety Report 11087595 (Version 1)
Quarter: 2015Q2

REPORT INFORMATION
  Report Type: Spontaneous
  Country: US (occurrence: None)
  Receive Date: 20150501
  Receipt Date: 20150501
  Transmission Date: 20150821
  Serious: Yes (Disabling)
  Sender: FDA-Public Use
  Company Number: None

PATIENT
  Age: 73 Year
  Sex: Female
  Weight: 70.31 kg

DRUGS (11)
  1. CEPHALEXIN. [Concomitant]
     Active Substance: CEPHALEXIN
  2. IRBESARTAN. [Concomitant]
     Active Substance: IRBESARTAN
  3. QVAR [Concomitant]
     Active Substance: BECLOMETHASONE DIPROPIONATE
  4. CEPHALEXIN. [Suspect]
     Active Substance: CEPHALEXIN
     Indication: CELLULITIS
     Dosage: TAKEN BY MOUTH
     Dates: start: 20150420, end: 20150429
  5. TOLNAFTATE. [Concomitant]
     Active Substance: TOLNAFTATE
  6. PROAIR HFA [Concomitant]
     Active Substance: ALBUTEROL SULFATE
  7. VAGIFEM [Concomitant]
     Active Substance: ESTRADIOL
  8. TOLNAFTATE. [Concomitant]
     Active Substance: TOLNAFTATE
  9. LEVOTHYROXINE [Concomitant]
     Active Substance: LEVOTHYROXINE
  10. LEVOTHYROXINE SODIUM. [Concomitant]
     Active Substance: LEVOTHYROXINE SODIUM
  11. IPATROPIUM [Concomitant]

REACTIONS (2)
  - Cognitive disorder [None]
  - Depression [None]

NARRATIVE: CASE EVENT DATE: 20150427
